FAERS Safety Report 19485411 (Version 2)
Quarter: 2021Q3

REPORT INFORMATION
  Report Type: Spontaneous
  Country: JP (occurrence: JP)
  Receive Date: 20210702
  Receipt Date: 20210720
  Transmission Date: 20211014
  Serious: Yes (Death, Hospitalization)
  Sender: FDA-Public Use
  Company Number: JP-TEVA-2021-JP-1928655

PATIENT
  Age: 65 Year
  Sex: Male
  Weight: 40.5 kg

DRUGS (7)
  1. CASPOFUNGIN [Suspect]
     Active Substance: CASPOFUNGIN
     Indication: ASPERGILLUS INFECTION
     Route: 065
  2. MEROPENEM. [Concomitant]
     Active Substance: MEROPENEM
     Indication: ASPERGILLUS INFECTION
     Route: 065
  3. DURVALUMAB. [Suspect]
     Active Substance: DURVALUMAB
     Indication: LUNG SQUAMOUS CELL CARCINOMA STAGE III
     Route: 065
  4. PACLITAXEL. [Suspect]
     Active Substance: PACLITAXEL
     Indication: LUNG SQUAMOUS CELL CARCINOMA STAGE III
     Dosage: ADMINISTERED ON DAYS 1, 8, 15, 22, 29, AND 36
     Route: 065
  5. PREDNISOLONE. [Concomitant]
     Active Substance: PREDNISOLONE
     Indication: PRODUCT USED FOR UNKNOWN INDICATION
     Route: 065
  6. CARBOPLATIN. [Suspect]
     Active Substance: CARBOPLATIN
     Indication: LUNG SQUAMOUS CELL CARCINOMA STAGE III
     Dosage: AUC: 2, ADMINISTERED ON DAYS 1, 8, 15, 22, 29, AND 36
     Route: 065
  7. VORICONAZOLE. [Suspect]
     Active Substance: VORICONAZOLE
     Indication: ASPERGILLUS INFECTION
     Route: 065

REACTIONS (6)
  - Pulmonary necrosis [Fatal]
  - Radiation pneumonitis [Fatal]
  - Disseminated intravascular coagulation [Fatal]
  - Thrombosis [Fatal]
  - Drug ineffective [Unknown]
  - Respiratory failure [Fatal]
